FAERS Safety Report 12238778 (Version 1)
Quarter: 2016Q2

REPORT INFORMATION
  Report Type: Spontaneous
  Country: US (occurrence: US)
  Receive Date: 20160405
  Receipt Date: 20160405
  Transmission Date: 20160815
  Serious: No
  Sender: FDA-Public Use
  Company Number: US-TEVA-617466USA

PATIENT
  Age: 57 Year
  Sex: Female
  Weight: 104.42 kg

DRUGS (2)
  1. BARR^S WARFARIN [Concomitant]
     Indication: COAGULOPATHY
     Route: 065
  2. WARFARIN [Suspect]
     Active Substance: WARFARIN
     Indication: COAGULOPATHY
     Route: 065

REACTIONS (5)
  - Pruritus [Recovering/Resolving]
  - Lip swelling [Recovered/Resolved with Sequelae]
  - Swollen tongue [Recovering/Resolving]
  - Headache [Recovering/Resolving]
  - Erythema [Recovering/Resolving]

NARRATIVE: CASE EVENT DATE: 201512
